FAERS Safety Report 9685247 (Version 1)
Quarter: 2013Q4

REPORT INFORMATION
  Report Type: Spontaneous
  Country: US (occurrence: None)
  Receive Date: 20131112
  Receipt Date: 20131112
  Transmission Date: 20140711
  Serious: No
  Sender: FDA-Public Use
  Company Number: None

PATIENT
  Age: 16 None
  Sex: Female
  Weight: 56.7 kg

DRUGS (4)
  1. BONIVA [Suspect]
     Indication: OSTEOPOROSIS
     Dosage: EVERY THREE MONTHS INJECTION
     Dates: start: 2008, end: 201310
  2. FOSAMAX [Concomitant]
  3. ACTONEL [Concomitant]
  4. BONIVIA [Concomitant]

REACTIONS (4)
  - Lower limb fracture [None]
  - Pain in extremity [None]
  - Pain [None]
  - Gait disturbance [None]
